FAERS Safety Report 17346496 (Version 2)
Quarter: 2020Q1

REPORT INFORMATION
  Report Type: Spontaneous
  Country: BR (occurrence: BR)
  Receive Date: 20200130
  Receipt Date: 20200324
  Transmission Date: 20200409
  Serious: Yes (Other)
  Sender: FDA-Public Use
  Company Number: NVSC2020BR021639

PATIENT
  Sex: Female

DRUGS (1)
  1. ZARZIO [Suspect]
     Active Substance: FILGRASTIM
     Indication: PRODUCT USED FOR UNKNOWN INDICATION
     Dosage: UNK
     Route: 065

REACTIONS (7)
  - Chest pain [Unknown]
  - Blood pressure increased [Unknown]
  - Erythema [Unknown]
  - Feeling hot [Unknown]
  - Ocular hyperaemia [Unknown]
  - Arrhythmia [Unknown]
  - Vision blurred [Unknown]
